FAERS Safety Report 5691554-6 (Version None)
Quarter: 2008Q2

REPORT INFORMATION
  Report Type: 
  Country: None (occurrence: None)
  Receive Date: 20080402
  Receipt Date: 20080325
  Transmission Date: 20081010
  Serious: Yes (Death)
  Sender: FDA-Public Use
  Company Number: US-ROCHE-545272

PATIENT
  Age: 52 Year
  Sex: Male

DRUGS (13)
  1. KLONOPIN [Suspect]
     Indication: DRUG USE FOR UNKNOWN INDICATION
     Route: 065
  2. CYMBALTA [Suspect]
     Indication: DRUG USE FOR UNKNOWN INDICATION
     Route: 065
  3. AMBIEN [Suspect]
     Indication: DRUG USE FOR UNKNOWN INDICATION
     Route: 065
  4. MODAFINIL [Concomitant]
  5. HYDROCODONE BITARTRATE [Concomitant]
  6. CORTICOSTEROIDS [Concomitant]
  7. OMEPRAZOLE [Concomitant]
  8. ACETYLSALICYLIC ACID SRT [Concomitant]
  9. CELECOXIB [Concomitant]
  10. VENLAFAXINE HCL [Concomitant]
  11. OXYCODONE HYDROCHLORIDE [Concomitant]
  12. IBUPROFEN [Concomitant]
  13. CYCLOBENZAPRINE HCL [Concomitant]

REACTIONS (2)
  - DEATH [None]
  - DEPRESSION [None]
